FAERS Safety Report 10049657 (Version 2)
Quarter: 2014Q2

REPORT INFORMATION
  Report Type: Spontaneous
  Country: US (occurrence: US)
  Receive Date: 20140401
  Receipt Date: 20140401
  Transmission Date: 20141212
  Serious: Yes (Other)
  Sender: FDA-Public Use
  Company Number: US-SA-POMP-1002071

PATIENT
  Age: 12 Year
  Sex: Male
  Weight: 30 kg

DRUGS (6)
  1. LUMIZYME [Suspect]
     Indication: GLYCOGEN STORAGE DISEASE TYPE II
     Dosage: 600 MG, Q2W
     Route: 042
     Dates: start: 201206
  2. LUMIZYME [Suspect]
     Indication: GLYCOGEN STORAGE DISEASE TYPE II
     Route: 042
     Dates: start: 201006, end: 201202
  3. LUMIZYME [Suspect]
     Indication: GLYCOGEN STORAGE DISEASE TYPE II
     Dosage: 10 MG/KG, Q2W
     Route: 042
     Dates: start: 20120511
  4. LUMIZYME [Suspect]
     Indication: GLYCOGEN STORAGE DISEASE TYPE II
     Dosage: 600 MG, Q2W
     Route: 042
     Dates: start: 20100330
  5. BENADRYL [Concomitant]
     Indication: PREMEDICATION
  6. IBUPROFEN [Concomitant]
     Indication: PREMEDICATION

REACTIONS (6)
  - Chronic recurrent multifocal osteomyelitis [Unknown]
  - Red blood cell sedimentation rate increased [Not Recovered/Not Resolved]
  - Skin lesion [Unknown]
  - C-reactive protein increased [Recovered/Resolved]
  - Anaemia [Unknown]
  - Fall [Unknown]
